FAERS Safety Report 6783369-2 (Version None)
Quarter: 2010Q2

REPORT INFORMATION
  Report Type: 
  Country: None (occurrence: None)
  Receive Date: 20100520
  Receipt Date: 20090831
  Transmission Date: 20101027
  Serious: Yes (Other)
  Sender: FDA-Public Use
  Company Number: 2009261889

PATIENT
  Age: 58 Year
  Sex: Female

DRUGS (6)
  1. PROVERA [Suspect]
     Indication: HORMONE REPLACEMENT THERAPY
     Dates: start: 19890101, end: 19940501
  2. PREMARIN [Suspect]
     Indication: HORMONE REPLACEMENT THERAPY
     Dates: start: 19890101, end: 19940501
  3. PREMPRO [Suspect]
     Indication: HORMONE REPLACEMENT THERAPY
     Dates: start: 19940501, end: 20010401
  4. EXCEDRIN /BRA/ (CAFFEINE, PARACETAMOL) [Concomitant]
  5. SULAR [Concomitant]
  6. FUROSEMIDE [Concomitant]

REACTIONS (1)
  - BREAST CANCER [None]
